FAERS Safety Report 9513391 (Version 1)
Quarter: 2013Q3

REPORT INFORMATION
  Report Type: Spontaneous
  Country: US (occurrence: US)
  Receive Date: 20130910
  Receipt Date: 20130910
  Transmission Date: 20140515
  Serious: No
  Sender: FDA-Public Use
  Company Number: 2012P1048684

PATIENT
  Age: 87 Year
  Sex: Female
  Weight: 77.11 kg

DRUGS (6)
  1. WARFARIN SODIUM TABLETS USP 4MG [Suspect]
     Route: 048
     Dates: start: 201108
  2. WARFARIN SODIUM TABLETS USP 4MG [Suspect]
     Route: 048
     Dates: start: 201108
  3. AMIODARONE HCL TABLET 200 MG [Suspect]
     Route: 048
     Dates: start: 201201
  4. AMIODARONE HCL TABLET 200 MG [Suspect]
     Route: 048
     Dates: end: 20120701
  5. CARVEDILOL [Concomitant]
  6. SIMVASTATIN [Concomitant]

REACTIONS (7)
  - Heart rate irregular [Recovered/Resolved]
  - Swelling [Not Recovered/Not Resolved]
  - Epistaxis [Recovered/Resolved]
  - Vaginal haemorrhage [Recovered/Resolved]
  - Weight increased [Not Recovered/Not Resolved]
  - Contusion [Not Recovered/Not Resolved]
  - Hyperphagia [Unknown]
